FAERS Safety Report 7238913-8 (Version None)
Quarter: 2011Q1

REPORT INFORMATION
  Report Type: 
  Country: None (occurrence: None)
  Receive Date: 20110119
  Receipt Date: 20110119
  Transmission Date: 20110831
  Serious: Yes (Hospitalization, Other)
  Sender: FDA-Public Use
  Company Number: None

PATIENT
  Age: 32 Year
  Sex: Female
  Weight: 86.1834 kg

DRUGS (1)
  1. APRI 28 DAY TABLET 0.15MG/0.03MG BARR [Suspect]
     Indication: ORAL CONTRACEPTION
     Dosage: 1 TABLET DAILY PO
     Route: 048
     Dates: start: 20081220, end: 20110111

REACTIONS (2)
  - CHOLELITHIASIS [None]
  - HEPATIC CYST [None]
